FAERS Safety Report 6327170-2 (Version None)
Quarter: 2009Q3

REPORT INFORMATION
  Report Type: 
  Country: None (occurrence: None)
  Receive Date: 20090825
  Receipt Date: 20090818
  Transmission Date: 20100115
  Serious: Yes (Other)
  Sender: FDA-Public Use
  Company Number: US-JNJFOC-20090806661

PATIENT
  Age: 40 Year
  Sex: Female

DRUGS (4)
  1. INTELENCE [Suspect]
     Indication: HIV INFECTION
     Route: 048
  2. PREZISTA [Suspect]
     Indication: HIV INFECTION
     Route: 048
  3. ISENTRESS [Concomitant]
     Indication: HIV INFECTION
     Route: 065
  4. RITONAVIR [Concomitant]
     Indication: HIV INFECTION
     Route: 065

REACTIONS (1)
  - HEPATITIS B [None]
